FAERS Safety Report 8955032 (Version 1)
Quarter: 2012Q4

REPORT INFORMATION
  Report Type: 
  Country: FR (occurrence: FR)
  Receive Date: 20121210
  Receipt Date: 20121210
  Transmission Date: 20130627
  Serious: Yes (Other)
  Sender: FDA-Public Use
  Company Number: FR-JNJFOC-20121113693

PATIENT
  Age: 86 Year
  Sex: Male
  Weight: 64 kg

DRUGS (9)
  1. XARELTO [Suspect]
     Indication: CEREBROVASCULAR ACCIDENT PROPHYLAXIS
     Route: 048
  2. XARELTO [Suspect]
     Indication: CEREBROVASCULAR ACCIDENT PROPHYLAXIS
     Dosage: in the evening during meal
     Route: 048
     Dates: start: 20120924, end: 20121005
  3. XARELTO [Suspect]
     Indication: ATRIAL FIBRILLATION
     Route: 048
  4. XARELTO [Suspect]
     Indication: ATRIAL FIBRILLATION
     Dosage: in the evening during meal
     Route: 048
     Dates: start: 20120924, end: 20121005
  5. TAHOR [Concomitant]
     Route: 065
     Dates: start: 2005
  6. KARDEGIC [Concomitant]
     Route: 065
     Dates: start: 2005
  7. INEXIUM [Concomitant]
     Route: 065
     Dates: start: 2005
  8. ACETYLSALICYLIC ACID [Concomitant]
     Route: 065
  9. TRIATEC [Concomitant]
     Route: 065
     Dates: start: 1930

REACTIONS (1)
  - Diarrhoea [Recovered/Resolved]
